FAERS Safety Report 11896638 (Version 2)
Quarter: 2018Q3

REPORT INFORMATION
  Report Type: Spontaneous
  Country: CH (occurrence: CH)
  Receive Date: 20160107
  Receipt Date: 20180711
  Transmission Date: 20181010
  Serious: Yes (Life-Threatening, Hospitalization)
  Sender: FDA-Public Use
  Company Number: CH-LPDUSPRD-20151069

PATIENT
  Age: 16 Year
  Sex: Female

DRUGS (1)
  1. VENOFER [Suspect]
     Active Substance: IRON SUCROSE
     Dosage: 500 MG IN 50 ML 0.9 NACL
     Route: 041
     Dates: start: 20151120, end: 20151120

REACTIONS (5)
  - Anaphylactic shock [Unknown]
  - Hypotension [Unknown]
  - Abdominal pain [Unknown]
  - Dyspnoea [Unknown]
  - Urticaria [Unknown]

NARRATIVE: CASE EVENT DATE: 20151120
